FAERS Safety Report 10352437 (Version 1)
Quarter: 2014Q3

REPORT INFORMATION
  Report Type: Spontaneous
  Country: US (occurrence: US)
  Receive Date: 20140730
  Receipt Date: 20140730
  Transmission Date: 20150326
  Serious: No
  Sender: FDA-Public Use
  Company Number: US-ABBVIE-14P-163-1213595-00

PATIENT
  Sex: Female

DRUGS (1)
  1. SYNTHROID [Suspect]
     Active Substance: LEVOTHYROXINE SODIUM
     Indication: PRODUCT USED FOR UNKNOWN INDICATION

REACTIONS (8)
  - Vision blurred [Unknown]
  - Balance disorder [Unknown]
  - Dizziness [Unknown]
  - Nervousness [Unknown]
  - Peripheral coldness [Unknown]
  - Vertigo [Unknown]
  - Anxiety [Unknown]
  - Fatigue [Unknown]
